FAERS Safety Report 10777296 (Version 1)
Quarter: 2015Q1

REPORT INFORMATION
  Report Type: Spontaneous
  Country: US (occurrence: None)
  Receive Date: 20150206
  Receipt Date: 20150206
  Transmission Date: 20150721
  Serious: No
  Sender: FDA-Public Use
  Company Number: None

PATIENT
  Age: 70 Year
  Sex: Female

DRUGS (3)
  1. CYCLOBENZAPRINE [Suspect]
     Active Substance: CYCLOBENZAPRINE
     Dosage: 10 MG TABLET B MOUTH, 1 TABLET BY MOUTH THREE TIMES A DAY AS NEEDED (PRN)
     Route: 048
     Dates: start: 20141228
  2. DIFLUCAN [Suspect]
     Active Substance: FLUCONAZOLE
     Route: 048
     Dates: start: 20141230
  3. CIPRO [Suspect]
     Active Substance: CIPROFLOXACIN HYDROCHLORIDE
     Dosage: CIPRO: 250 MG TABLET BY MOUTH, 1 TABLET BY MOUTH DAILY, STARTED DUN, DEC. 28 2014, I DIDNOT TAKE
     Route: 048
     Dates: start: 20141228

REACTIONS (2)
  - Back pain [None]
  - Chills [None]

NARRATIVE: CASE EVENT DATE: 20150102
